FAERS Safety Report 10347990 (Version 3)
Quarter: 2014Q4

REPORT INFORMATION
  Report Type: Spontaneous
  Country: US (occurrence: None)
  Receive Date: 20140725
  Receipt Date: 20141010
  Transmission Date: 20150528
  Serious: Yes (Hospitalization)
  Sender: FDA-Public Use
  Company Number: UNT-2014-004069

PATIENT
  Age: 52 Year
  Sex: Female
  Weight: 97.1 kg

DRUGS (5)
  1. REVATIO (SILDENAFIL CITRATE) [Concomitant]
  2. WARFARIN (WARFARIN) [Concomitant]
     Active Substance: WARFARIN
  3. REMODULIN [Suspect]
     Active Substance: TREPROSTINIL
     Indication: PULMONARY ARTERIAL HYPERTENSION
     Route: 058
     Dates: start: 20140413
  4. RIOCIGUAT (RIOCIGUAT) [Concomitant]
     Active Substance: RIOCIGUAT
  5. LETAIRIS [Concomitant]
     Active Substance: AMBRISENTAN

REACTIONS (2)
  - Pseudomembranous colitis [None]
  - Sepsis [None]

NARRATIVE: CASE EVENT DATE: 20140710
